FAERS Safety Report 6100879-1 (Version None)
Quarter: 2009Q1

REPORT INFORMATION
  Report Type: 
  Country: None (occurrence: None)
  Receive Date: 20090226
  Receipt Date: 20090219
  Transmission Date: 20090719
  Serious: Yes (Hospitalization)
  Sender: FDA-Public Use
  Company Number: CHPA2009US04673

PATIENT
  Age: 65 Year
  Sex: Female

DRUGS (1)
  1. ACETAMINOPHEN (PARACETAMOL), DIPHENHYDRAMINE HYDROCHLORIDE (NCH) (ACET [Suspect]
     Dosage: ORAL
     Route: 048

REACTIONS (4)
  - BLOOD ETHANOL INCREASED [None]
  - HEPATOTOXICITY [None]
  - INTERNATIONAL NORMALISED RATIO DECREASED [None]
  - MULTIPLE DRUG OVERDOSE [None]
